FAERS Safety Report 8136228-7 (Version None)
Quarter: 2012Q1

REPORT INFORMATION
  Report Type: 
  Country: None (occurrence: None)
  Receive Date: 20120210
  Receipt Date: 20120203
  Transmission Date: 20120608
  Serious: Yes (Other)
  Sender: FDA-Public Use
  Company Number: 2012SP005916

PATIENT

DRUGS (5)
  1. ASPIRIN [Suspect]
     Indication: PRODUCT USED FOR UNKNOWN INDICATION
  2. METOPROLOL TARTRATE [Suspect]
     Indication: PRODUCT USED FOR UNKNOWN INDICATION
  3. BETAMETHASONE [Suspect]
     Indication: PRODUCT USED FOR UNKNOWN INDICATION
  4. ATOSIBAN (ATOSIBAN) [Suspect]
     Indication: PRODUCT USED FOR UNKNOWN INDICATION
  5. CANDESARTAN CILEXETIL [Suspect]
     Indication: PRODUCT USED FOR UNKNOWN INDICATION

REACTIONS (5)
  - CYST [None]
  - ULTRASOUND ABDOMEN ABNORMAL [None]
  - RENAL FAILURE [None]
  - AMNIOCENTESIS ABNORMAL [None]
  - MATERNAL EXPOSURE DURING PREGNANCY [None]
